FAERS Safety Report 8467360-6 (Version None)
Quarter: 2012Q2

REPORT INFORMATION
  Report Type: 
  Country: None (occurrence: None)
  Receive Date: 20120626
  Receipt Date: 20120620
  Transmission Date: 20120825
  Serious: Yes (Other)
  Sender: FDA-Public Use
  Company Number: US-BAYER-2012-062473

PATIENT

DRUGS (3)
  1. ALEVE (CAPLET) [Suspect]
     Dosage: 1 U, UNK
     Route: 048
  2. ALLEGRA [Concomitant]
  3. GUAIFENESIN [Concomitant]

REACTIONS (2)
  - OROPHARYNGEAL PAIN [None]
  - DYSPNOEA [None]
